FAERS Safety Report 12900036 (Version 1)
Quarter: 2016Q4

REPORT INFORMATION
  Report Type: Spontaneous
  Country: US (occurrence: US)
  Receive Date: 20161101
  Receipt Date: 20161101
  Transmission Date: 20170207
  Serious: Yes (Death, Hospitalization)
  Sender: FDA-Public Use
  Company Number: US-TEVA-707883USA

PATIENT
  Age: 65 Year
  Sex: Female

DRUGS (9)
  1. ACETYLSALICYLIC ACID [Concomitant]
     Active Substance: ASPIRIN
  2. AMITRIPTYLINE [Concomitant]
     Active Substance: AMITRIPTYLINE
  3. CAPECITABINE. [Suspect]
     Active Substance: CAPECITABINE
     Dosage: COMPLETED 1 CYCLE 28-JUL-2016
     Route: 065
     Dates: start: 20160728
  4. TEMOZOLOMIDE. [Suspect]
     Active Substance: TEMOZOLOMIDE
     Dosage: 28-JUL-2016
     Route: 065
  5. ATENOLOL. [Concomitant]
     Active Substance: ATENOLOL
     Dates: start: 2011
  6. OCTREOTIDE. [Concomitant]
     Active Substance: OCTREOTIDE
  7. ATORVASTATIN [Concomitant]
     Active Substance: ATORVASTATIN
  8. LERCANIDIPINE [Concomitant]
     Active Substance: LERCANIDIPINE
  9. PANADOL [Concomitant]
     Active Substance: ACETAMINOPHEN

REACTIONS (4)
  - Pneumonitis [Recovering/Resolving]
  - Disease progression [Fatal]
  - Hypopituitarism [Not Recovered/Not Resolved]
  - Hepatic failure [Fatal]

NARRATIVE: CASE EVENT DATE: 20160825
